FAERS Safety Report 19286045 (Version 1)
Quarter: 2021Q2

REPORT INFORMATION
  Report Type: Spontaneous
  Country: GB (occurrence: GB)
  Receive Date: 20210521
  Receipt Date: 20210521
  Transmission Date: 20210717
  Serious: Yes (Hospitalization)
  Sender: FDA-Public Use
  Company Number: GB-CURIUM-2021000356

PATIENT
  Age: 73 Year
  Sex: Male

DRUGS (2)
  1. TECHNESCAN PYP [Suspect]
     Active Substance: TECHNETIUM TC-99M PYROPHOSPHATE
     Route: 042
     Dates: start: 20210504, end: 20210504
  2. UNKNOWN MEDICATION [Concomitant]
     Active Substance: UNSPECIFIED INGREDIENT

REACTIONS (1)
  - Circulatory collapse [Recovering/Resolving]

NARRATIVE: CASE EVENT DATE: 20210504
